FAERS Safety Report 6909728-2 (Version None)
Quarter: 2010Q3

REPORT INFORMATION
  Report Type: 
  Country: None (occurrence: None)
  Receive Date: 20100805
  Receipt Date: 20100723
  Transmission Date: 20110219
  Serious: Yes (Other)
  Sender: FDA-Public Use
  Company Number: US-MYLANLABS-2010S1011673

PATIENT
  Age: 36 Year
  Sex: Male

DRUGS (3)
  1. CLOZAPINE [Suspect]
     Indication: SCHIZOPHRENIA
     Route: 048
     Dates: start: 20040101
  2. DEPAKOTE [Concomitant]
     Indication: EPILEPSY
  3. COGENTIN [Concomitant]
     Dates: start: 20080101

REACTIONS (7)
  - CONVULSION [None]
  - DROOLING [None]
  - EXTRAPYRAMIDAL DISORDER [None]
  - PLEURAL EFFUSION [None]
  - SEDATION [None]
  - WEIGHT DECREASED [None]
  - WEIGHT INCREASED [None]
